FAERS Safety Report 18626349 (Version 2)
Quarter: 2020Q4

REPORT INFORMATION
  Report Type: Report from Study
  Country: None (occurrence: US)
  Receive Date: 20201216
  Receipt Date: 20201220
  Transmission Date: 20210114
  Serious: Yes (Other)
  Sender: FDA-Public Use
  Company Number: US-ABBVIE-20K-163-3693224-00

PATIENT
  Age: 63 Year
  Sex: Male

DRUGS (1)
  1. RINVOQ [Suspect]
     Active Substance: UPADACITINIB
     Indication: RHEUMATOID ARTHRITIS
     Route: 048

REACTIONS (4)
  - Neck pain [Not Recovered/Not Resolved]
  - Insomnia [Unknown]
  - Intervertebral disc degeneration [Unknown]
  - Prostate cancer [Unknown]

NARRATIVE: CASE EVENT DATE: 202003
